FAERS Safety Report 19269251 (Version 1)
Quarter: 2021Q2

REPORT INFORMATION
  Report Type: Spontaneous
  Country: FR (occurrence: FR)
  Receive Date: 20210517
  Receipt Date: 20210517
  Transmission Date: 20210717
  Serious: Yes (Congenital Anomaly)
  Sender: FDA-Public Use
  Company Number: FR-US-PROVELL PHARMACEUTICALS LLC-E2B_90083483

PATIENT
  Age: 2 Year
  Sex: Female

DRUGS (2)
  1. DEPAKINE                           /00228501/ [Suspect]
     Active Substance: VALPROIC ACID
     Indication: EPILEPSY
     Route: 064
  2. LEVOTHYROX [Suspect]
     Active Substance: LEVOTHYROXINE
     Indication: THYROID DISORDER
     Route: 064

REACTIONS (2)
  - Fine motor delay [Not Recovered/Not Resolved]
  - Learning disability [Not Recovered/Not Resolved]

NARRATIVE: CASE EVENT DATE: 2019
